FAERS Safety Report 9186358 (Version 2)
Quarter: 2013Q2

REPORT INFORMATION
  Report Type: Spontaneous
  Country: IN (occurrence: IN)
  Receive Date: 20130325
  Receipt Date: 20130410
  Transmission Date: 20140414
  Serious: Yes (Death)
  Sender: FDA-Public Use
  Company Number: IN-ASTRAZENECA-2013SE18917

PATIENT
  Age: 23049 Day
  Sex: Female

DRUGS (12)
  1. TICAGRELOR [Suspect]
     Indication: ACUTE CORONARY SYNDROME
     Route: 048
     Dates: start: 20130116, end: 20130221
  2. ASPIRIN [Suspect]
     Route: 065
  3. RAMISTAR [Concomitant]
     Dates: start: 20130116
  4. RUDIMIN [Concomitant]
     Dosage: DAILY
     Dates: start: 20130116
  5. PEGMOVE POWDER [Concomitant]
     Dosage: DAILY
     Dates: start: 20130116, end: 20130121
  6. ALPRAX [Concomitant]
  7. PARACIP [Concomitant]
     Dates: start: 20130116
  8. RACIPER [Concomitant]
     Dates: start: 20130116
  9. ATORVA [Concomitant]
     Dates: start: 20130116
  10. SELOKEN XL [Concomitant]
     Dates: start: 20130116
  11. ALPHA D3 [Concomitant]
     Dates: start: 20130116
  12. LANTUS [Concomitant]
     Dates: start: 20130116

REACTIONS (1)
  - Subdural haematoma [Fatal]
